FAERS Safety Report 9315716 (Version 1)
Quarter: 2013Q2

REPORT INFORMATION
  Report Type: Spontaneous
  Country: CN (occurrence: CN)
  Receive Date: 20130529
  Receipt Date: 20130529
  Transmission Date: 20140414
  Serious: Yes (Hospitalization, Other)
  Sender: FDA-Public Use
  Company Number: PHHY2013CN053199

PATIENT
  Age: 10 Year
  Sex: Male

DRUGS (8)
  1. VINCRISTINE [Suspect]
     Indication: ACUTE LYMPHOCYTIC LEUKAEMIA
  2. METHOTREXATE [Suspect]
     Indication: ACUTE LYMPHOCYTIC LEUKAEMIA
     Route: 037
  3. CYTARABINE [Suspect]
     Indication: ACUTE LYMPHOCYTIC LEUKAEMIA
     Route: 037
  4. CYCLOPHOSPHAMIDE [Suspect]
     Indication: ACUTE LYMPHOCYTIC LEUKAEMIA
  5. DAUNOMYCIN [Suspect]
     Indication: ACUTE LYMPHOCYTIC LEUKAEMIA
  6. L-ASPARAGINASE [Suspect]
     Indication: ACUTE LYMPHOCYTIC LEUKAEMIA
  7. TENIPOSIDE [Suspect]
     Indication: ACUTE LYMPHOCYTIC LEUKAEMIA
  8. PREDNISONE [Concomitant]
     Indication: ACUTE LYMPHOCYTIC LEUKAEMIA

REACTIONS (13)
  - Temporal lobe epilepsy [Recovered/Resolved]
  - Brain injury [Unknown]
  - Coagulopathy [Unknown]
  - Cerebral disorder [Unknown]
  - Confusional state [Unknown]
  - Cerebral haemorrhage [Recovered/Resolved]
  - Epilepsy [Recovered/Resolved]
  - Micturition urgency [Unknown]
  - Convulsion [Recovered/Resolved]
  - Automatism epileptic [Unknown]
  - Tonic clonic movements [Unknown]
  - Extradural haematoma [Recovered/Resolved]
  - Epileptic aura [Unknown]
